FAERS Safety Report 24913020 (Version 1)
Quarter: 2025Q1

REPORT INFORMATION
  Report Type: Report from Study
  Country: US (occurrence: US)
  Receive Date: 20250201
  Receipt Date: 20250201
  Transmission Date: 20250409
  Serious: Yes (Other)
  Sender: ABBVIE
  Company Number: US-ABBVIE-6105495

PATIENT
  Age: 51 Year
  Sex: Female

DRUGS (1)
  1. SKYRIZI [Suspect]
     Active Substance: RISANKIZUMAB-RZAA
     Indication: Crohn^s disease
     Dosage: 360MG
     Route: 058
     Dates: start: 2022, end: 202207

REACTIONS (5)
  - Surgery [Unknown]
  - Therapeutic product effect decreased [Recovered/Resolved]
  - Crohn^s disease [Unknown]
  - Stenosis [Unknown]
  - Post procedural complication [Unknown]

NARRATIVE: CASE EVENT DATE: 20220501
